FAERS Safety Report 4466917-7 (Version None)
Quarter: 2004Q4

REPORT INFORMATION
  Report Type: 
  Country: None (occurrence: None)
  Receive Date: 20041006
  Receipt Date: 20040927
  Transmission Date: 20050328
  Serious: Yes (Hospitalization)
  Sender: FDA-Public Use
  Company Number: DK-JNJFOC-20040908793

PATIENT
  Sex: Female

DRUGS (11)
  1. SPORANOX [Suspect]
     Route: 049
     Dates: start: 20040319
  2. SPORANOX [Suspect]
     Indication: FUNGAL INFECTION
     Dosage: 19MAR04-25MAR04, 29MAR04-CONTINUOUS
     Route: 049
     Dates: start: 20040319
  3. TRIZIVIR [Concomitant]
     Dates: start: 20031106
  4. TRIZIVIR [Concomitant]
     Dates: start: 20031106
  5. TRIZIVIR [Concomitant]
     Dates: start: 20031106
  6. VIDEX [Concomitant]
     Indication: HIV INFECTION
     Dates: start: 20020211
  7. FOSAMPRENAVIR [Concomitant]
     Indication: HIV INFECTION
     Dates: start: 20040220
  8. SULFADIAZINE [Concomitant]
     Indication: TOXOPLASMOSIS
     Dates: start: 20040213
  9. DARAPRIM [Concomitant]
     Indication: TOXOPLASMOSIS
     Dates: start: 20040213
  10. AMPRENAVIR [Concomitant]
     Dates: start: 20031103, end: 20040220
  11. RITONAVIR [Concomitant]
     Dates: start: 20020211

REACTIONS (1)
  - OESOPHAGEAL CANDIDIASIS [None]
